FAERS Safety Report 6912677 (Version 3)
Quarter: 2013Q3

REPORT INFORMATION
  Report Type: Spontaneous
  Country: US (occurrence: US)
  Receive Date: 20090218
  Receipt Date: 20130821
  Transmission Date: 20140515
  Serious: Yes (Other)
  Sender: FDA-Public Use
  Company Number: US-JNJFOC-20090202140

PATIENT
  Sex: Female

DRUGS (1)
  1. REMICADE [Suspect]
     Indication: PSORIATIC ARTHROPATHY
     Route: 042

REACTIONS (1)
  - Mycosis fungoides [Not Recovered/Not Resolved]
